FAERS Safety Report 4892990-8 (Version None)
Quarter: 2005Q4

REPORT INFORMATION
  Report Type: 
  Country: None (occurrence: None)
  Receive Date: 20051223
  Receipt Date: 20050502
  Transmission Date: 20060501
  Serious: Yes (Hospitalization)
  Sender: FDA-Public Use
  Company Number: PHEH2005US05030

PATIENT
  Age: 56 Year
  Sex: Male

DRUGS (1)
  1. CLOZARIL [Suspect]
     Dosage: ORAL
     Route: 048
     Dates: end: 20050321

REACTIONS (2)
  - EOSINOPHILIA [None]
  - PSYCHOTIC DISORDER [None]
